FAERS Safety Report 7591588-0 (Version None)
Quarter: 2011Q3

REPORT INFORMATION
  Report Type: 
  Country: None (occurrence: None)
  Receive Date: 20110706
  Receipt Date: 20080523
  Transmission Date: 20111222
  Serious: Yes (Death, Other)
  Sender: FDA-Public Use
  Company Number: US-BAYER-200824096NA

PATIENT
  Age: 75 Year
  Sex: Female
  Weight: 77 kg

DRUGS (12)
  1. TRASYLOL [Suspect]
     Dosage: 50 ML/HOUR INFUSION
     Route: 042
     Dates: start: 20060316, end: 20060316
  2. PLAVIX [Concomitant]
     Dosage: 75 MG, QD
     Route: 048
  3. MAGNEVIST [Concomitant]
     Dosage: 30 PER ML
     Dates: start: 20060313
  4. TRASYLOL [Suspect]
     Dosage: 200 ML LOADING DOSE
     Route: 040
     Dates: start: 20060316, end: 20060316
  5. AMBIEN [Concomitant]
     Dosage: 10 MG, QD
     Route: 048
  6. HEPARIN [Concomitant]
     Dosage: 320000 U
     Route: 042
     Dates: start: 20060313
  7. PAMELOR [Concomitant]
     Dosage: 75 MG, 2 TABS AT BEDTIME
     Route: 048
  8. PRAVACHOL [Concomitant]
     Dosage: 40 MG, QD
     Route: 048
  9. ATIVAN [Concomitant]
     Dosage: 0.5 MG, BID AS NEEDED
     Route: 048
  10. TRASYLOL [Suspect]
     Indication: CORONARY ARTERY BYPASS
     Dosage: 1 ML, ONCE, TEST DOSE
     Route: 042
     Dates: start: 20060316, end: 20060316
  11. TENORMIN [Concomitant]
     Dosage: 25 MG, QD
     Route: 048
  12. PROTAMINE SULFATE [Concomitant]
     Dosage: 350
     Route: 042
     Dates: start: 20060313

REACTIONS (2)
  - RENAL FAILURE [None]
  - DEATH [None]
